FAERS Safety Report 4415853-0 (Version None)
Quarter: 2004Q3

REPORT INFORMATION
  Report Type: 
  Country: None (occurrence: None)
  Receive Date: 20040730
  Receipt Date: 20040722
  Transmission Date: 20050211
  Serious: Yes (Other)
  Sender: FDA-Public Use
  Company Number: 200410389BYL

PATIENT
  Age: 43 Year
  Sex: Male
  Weight: 68 kg

DRUGS (1)
  1. LEVITRA [Suspect]
     Indication: ERECTILE DYSFUNCTION
     Dosage: 20 MG, ONCE, ORAL
     Route: 048

REACTIONS (7)
  - CEREBROVASCULAR DISORDER [None]
  - DIZZINESS [None]
  - HOT FLUSH [None]
  - PALPITATIONS [None]
  - PARALYSIS [None]
  - SPEECH DISORDER [None]
  - VISUAL DISTURBANCE [None]
